FAERS Safety Report 12184186 (Version 1)
Quarter: 2016Q1

REPORT INFORMATION
  Report Type: Spontaneous
  Country: US (occurrence: None)
  Receive Date: 20160315
  Receipt Date: 20160315
  Transmission Date: 20160526
  Serious: Yes (Hospitalization)
  Sender: FDA-Public Use
  Company Number: None

PATIENT
  Age: 20 Year
  Sex: Female

DRUGS (3)
  1. HYOSCYAMINE SULFATE. [Suspect]
     Active Substance: HYOSCYAMINE SULFATE
     Indication: GASTROINTESTINAL PAIN
     Route: 060
     Dates: start: 20160224, end: 20160226
  2. TRI-SPRINTEC [Concomitant]
     Active Substance: ETHINYL ESTRADIOL\NORGESTIMATE
  3. HYOSCYAMINE SULFATE. [Suspect]
     Active Substance: HYOSCYAMINE SULFATE
     Indication: ABDOMINAL PAIN UPPER
     Route: 060
     Dates: start: 20160224, end: 20160226

REACTIONS (7)
  - Disorientation [None]
  - Product taste abnormal [None]
  - Heart rate decreased [None]
  - Loss of consciousness [None]
  - Dizziness [None]
  - Dry mouth [None]
  - Blood pressure decreased [None]

NARRATIVE: CASE EVENT DATE: 20160226
